FAERS Safety Report 6210115-3 (Version None)
Quarter: 2009Q2

REPORT INFORMATION
  Report Type: 
  Country: None (occurrence: None)
  Receive Date: 20090601
  Receipt Date: 20090518
  Transmission Date: 20091009
  Serious: No
  Sender: FDA-Public Use
  Company Number: US-B.I. PHARMACEUTICALS,INC./RIDGEFIELD-2009-BP-06510BP

PATIENT

DRUGS (11)
  1. SPIRIVA [Suspect]
  2. K-DUR [Concomitant]
     Route: 065
  3. ALPRAZOLAM [Concomitant]
     Route: 065
  4. ACIPHEX [Concomitant]
     Route: 065
  5. PREDNISONE [Concomitant]
     Route: 065
  6. LANOXIN [Concomitant]
     Route: 065
  7. VERAPAMIL [Concomitant]
     Route: 065
  8. IBUPROFEN [Concomitant]
     Route: 065
  9. PULMICORT-100 [Concomitant]
     Route: 065
  10. COMBIVENT [Concomitant]
     Route: 065
  11. XOPENEX [Concomitant]
     Route: 065
     Dates: end: 20090101

REACTIONS (2)
  - DYSURIA [None]
  - OROPHARYNGEAL PAIN [None]
